FAERS Safety Report 15330475 (Version 2)
Quarter: 2018Q4

REPORT INFORMATION
  Report Type: Report from Study
  Country: CA (occurrence: CA)
  Receive Date: 20180829
  Receipt Date: 20181015
  Transmission Date: 20190204
  Serious: Yes (Other)
  Sender: FDA-Public Use
  Company Number: CA-JNJFOC-20180821772

PATIENT
  Sex: Female
  Weight: 77 kg

DRUGS (1)
  1. SIMPONI [Suspect]
     Active Substance: GOLIMUMAB
     Indication: RHEUMATOID ARTHRITIS
     Dosage: THE DRUG START DATE ALSO REPORTED AS 13-SEP-2018.
     Route: 058
     Dates: start: 20180718

REACTIONS (3)
  - Diverticulitis [Not Recovered/Not Resolved]
  - Urinary tract infection [Unknown]
  - Arthralgia [Not Recovered/Not Resolved]

NARRATIVE: CASE EVENT DATE: 2018
